FAERS Safety Report 6097975-4 (Version None)
Quarter: 2009Q1

REPORT INFORMATION
  Report Type: 
  Country: None (occurrence: None)
  Receive Date: 20090227
  Receipt Date: 20090224
  Transmission Date: 20090719
  Serious: Yes (Death)
  Sender: FDA-Public Use
  Company Number: JP-ASTRAZENECA-2009AP01175

PATIENT
  Age: 51 Year
  Sex: Female
  Weight: 45 kg

DRUGS (11)
  1. IRESSA [Suspect]
     Indication: LUNG ADENOCARCINOMA
     Route: 048
     Dates: start: 20081215, end: 20090111
  2. FLAVERIC [Concomitant]
     Route: 048
     Dates: start: 20081203, end: 20090111
  3. MAGLAX [Concomitant]
     Route: 048
     Dates: start: 20081203, end: 20090111
  4. TAKEPRON [Concomitant]
     Route: 048
     Dates: start: 20081209, end: 20081229
  5. NAIXAN [Concomitant]
     Route: 048
     Dates: start: 20081209, end: 20081229
  6. CLARITHROMYCIN [Concomitant]
     Route: 048
     Dates: start: 20081229, end: 20090111
  7. MUCOSTA [Concomitant]
     Route: 048
     Dates: start: 20081229, end: 20090111
  8. GASTROZEPIN [Concomitant]
     Route: 048
     Dates: start: 20081229, end: 20090111
  9. LASIX [Concomitant]
     Route: 048
     Dates: start: 20081229, end: 20090111
  10. OXYCONTIN [Concomitant]
     Dosage: DOSE UNKNOWN
     Route: 048
  11. CODEINE PHOSPHATE [Concomitant]
     Dosage: DOSE UNKNOWN
     Route: 065

REACTIONS (1)
  - LUNG DISORDER [None]
